FAERS Safety Report 5147954-6 (Version None)
Quarter: 2006Q4

REPORT INFORMATION
  Report Type: 
  Country: None (occurrence: None)
  Receive Date: 20061110
  Receipt Date: 20060307
  Transmission Date: 20070319
  Serious: Yes (Other)
  Sender: FDA-Public Use
  Company Number: DE-AVENTIS-200610625DE

PATIENT
  Age: 38 Year
  Sex: Female

DRUGS (6)
  1. ARAVA [Suspect]
     Indication: POLYARTHRITIS
     Route: 048
     Dates: end: 20051201
  2. METEX [Concomitant]
     Indication: POLYARTHRITIS
     Dates: end: 20051201
  3. FOLSAEURE [Concomitant]
     Dates: end: 20051201
  4. PREDNISOLON [Concomitant]
     Indication: POLYARTHRITIS
     Route: 048
  5. CALCIUM [Concomitant]
     Indication: OSTEOPOROSIS PROPHYLAXIS
     Dosage: DOSE: NOT REPORTED
     Route: 048
  6. VIT D [Concomitant]
     Indication: OSTEOPOROSIS PROPHYLAXIS
     Dosage: DOSE: NOT REPORTED
     Route: 048

REACTIONS (5)
  - AMNIOCENTESIS ABNORMAL [None]
  - AMNIOTIC INFECTION SYNDROME OF BLANE [None]
  - CAESAREAN SECTION [None]
  - DRUG EXPOSURE DURING PREGNANCY [None]
  - FOETAL DISORDER [None]
